FAERS Safety Report 5567226-5 (Version None)
Quarter: 2007Q4

REPORT INFORMATION
  Report Type: 
  Country: None (occurrence: None)
  Receive Date: 20071219
  Receipt Date: 20071214
  Transmission Date: 20080405
  Serious: Yes (Hospitalization, Other)
  Sender: FDA-Public Use
  Company Number: PH-AVENTIS-200721444GDDC

PATIENT
  Sex: Male
  Weight: 60 kg

DRUGS (5)
  1. SOLOSAMET [Suspect]
     Indication: DIABETES MELLITUS
     Dosage: DOSE: 2/500
     Route: 048
  2. OLMESARTAN MEDOXOMIL [Concomitant]
     Indication: HYPERTENSION
     Route: 048
  3. ASPIRIN [Concomitant]
     Route: 048
  4. ROSUVASTATIN [Concomitant]
     Route: 048
  5. ROSIGLITAZONE [Concomitant]
     Indication: DIABETES MELLITUS
     Route: 048

REACTIONS (2)
  - DEPRESSED LEVEL OF CONSCIOUSNESS [None]
  - HYPOTENSION [None]
